FAERS Safety Report 24531577 (Version 1)
Quarter: 2024Q4

REPORT INFORMATION
  Report Type: Report from Study
  Country: US (occurrence: US)
  Receive Date: 20241022
  Receipt Date: 20241022
  Transmission Date: 20250114
  Serious: No
  Sender: ROCHE
  Company Number: US-ROCHE-2565063

PATIENT
  Age: 29 Year
  Sex: Male

DRUGS (31)
  1. PULMOZYME [Suspect]
     Active Substance: DORNASE ALFA
     Indication: Asthma
     Dosage: 1 MG/ML
     Route: 065
  2. PULMOZYME [Suspect]
     Active Substance: DORNASE ALFA
     Indication: Diaphragmatic disorder
  3. PULMOZYME [Suspect]
     Active Substance: DORNASE ALFA
     Indication: Muscle spasms
  4. PULMOZYME [Suspect]
     Active Substance: DORNASE ALFA
     Indication: Scoliosis
  5. PULMOZYME [Suspect]
     Active Substance: DORNASE ALFA
     Indication: Pneumonia
  6. PULMOZYME [Suspect]
     Active Substance: DORNASE ALFA
     Indication: Muscle spasticity
  7. PULMOZYME [Suspect]
     Active Substance: DORNASE ALFA
     Indication: Cerebral palsy
  8. PULMOZYME [Suspect]
     Active Substance: DORNASE ALFA
     Indication: Scoliosis
  9. CLONAZEPAM [Suspect]
     Active Substance: CLONAZEPAM
     Indication: Anxiety
     Route: 048
  10. ACETAMINOPHEN [Concomitant]
     Active Substance: ACETAMINOPHEN
     Indication: Pain
     Route: 048
  11. PROVENTIL [Concomitant]
     Active Substance: ALBUTEROL
     Indication: Dyspnoea
     Dosage: 2.5 MG/3ML, INHALE 2 PUFFS EVERY 4 HOURS
  12. VENTOLIN [Concomitant]
     Active Substance: ALBUTEROL SULFATE
     Indication: Dyspnoea
     Dosage: INHALE 2 PUFFS EVERY 4 HOURS
  13. BROVANA [Concomitant]
     Active Substance: ARFORMOTEROL TARTRATE
     Dosage: 15 MCG/2 ML NEBU, ONE VIAL VIA NEBULIZER 2 TIMES DAILY
  14. BUDESONIDE [Concomitant]
     Active Substance: BUDESONIDE
     Indication: Asthma
     Dosage: ONE VIAL
     Route: 048
  15. ZYRTEC [Concomitant]
     Active Substance: CETIRIZINE HYDROCHLORIDE
     Route: 048
  16. CHOLECALCIFEROL [Concomitant]
     Active Substance: CHOLECALCIFEROL
     Dosage: 1 TAB BY G-TUBE ROUTE DAILY
  17. CIPROFLOXACIN [Concomitant]
     Active Substance: CIPROFLOXACIN
     Dosage: TAKE 1 TABLET BY MOUTH
     Route: 048
  18. CLINDAMYCIN [Concomitant]
     Active Substance: CLINDAMYCIN
     Dosage: APPLY 1 APPLICATION TOPICALLY 2 TIMES DAY
     Route: 061
  19. DIPHENHYDRAMINE [Concomitant]
     Active Substance: DIPHENHYDRAMINE
     Route: 048
  20. HYDROCORTISONE [Concomitant]
     Active Substance: HYDROCORTISONE
     Dosage: APPLY 2 TIMES DAILY
     Route: 061
  21. MELATONIN [Concomitant]
     Active Substance: MELATONIN
     Dosage: 5 MG TABLET, 1 MG TABLET BY G-TUBE ROUT NIGHTLY
  22. BACTROBAN [Concomitant]
     Active Substance: BACTROBAN
     Dosage: APPLY TOPICALLY DAILY
     Route: 061
  23. MYCOSTATIN [Concomitant]
     Active Substance: NYSTATIN
     Indication: Rash
     Dosage: APPLY TOPICALLY AS NEEDED
     Route: 061
  24. PHENOBARBITAL [Concomitant]
     Active Substance: PHENOBARBITAL
     Dosage: 30 MG/ 7.5 ML ELIXIR, 15 ML VIA G-TUBE 2 TIMES DAILY
  25. PREDNISONE [Concomitant]
     Active Substance: PREDNISONE
     Dosage: 40 MG FOR 3 DAYS, THEN 30 MG FOR 3 DAYS, THEN 20 MG FOR 3 DAYS, 10 MG FOR 3 DAYS
  26. SODIUM CHLORIDE [Concomitant]
     Active Substance: SODIUM CHLORIDE
     Indication: Wheezing
     Dosage: TAKE 4 ML BU NEBULIZATION AS NEEDED? FREQUENCY TEXT:AS NEEDED
  27. SODIUM CHLORIDE [Concomitant]
     Active Substance: SODIUM CHLORIDE
     Indication: Dyspnoea
  28. SYMBICORT [Concomitant]
     Active Substance: BUDESONIDE\FORMOTEROL FUMARATE DIHYDRATE
     Dosage: TWO INHALATIONS BY MOUTH ONCE DAILY
     Route: 055
  29. TIZANIDINE [Concomitant]
     Active Substance: TIZANIDINE
     Dosage: 1 TABLET BY G-TUBE ROUTE 4 TIMES DAILY
  30. TOBRAMYCIN [Concomitant]
     Active Substance: TOBRAMYCIN\TOBRAMYCIN SULFATE
     Dosage: ADMINISTER 2 DROPS TO BOTH EYES 3 TIMES A DAY
  31. ZINC OXIDE [Concomitant]
     Active Substance: ZINC OXIDE
     Route: 061

REACTIONS (4)
  - Off label use [Unknown]
  - Off label use [Unknown]
  - Malaise [Unknown]
  - Speech disorder [Unknown]
